FAERS Safety Report 8501866-6 (Version None)
Quarter: 2012Q3

REPORT INFORMATION
  Report Type: 
  Country: None (occurrence: None)
  Receive Date: 20120711
  Receipt Date: 20120705
  Transmission Date: 20120928
  Serious: Yes (Hospitalization)
  Sender: FDA-Public Use
  Company Number: PHEH2012US013268

PATIENT
  Sex: Male

DRUGS (1)
  1. TEGRETOL-XR [Suspect]
     Dosage: 200 MG 5 TIMES DAILY

REACTIONS (5)
  - LACERATION [None]
  - PAIN IN EXTREMITY [None]
  - FALL [None]
  - LIMB CRUSHING INJURY [None]
  - TREMOR [None]
